FAERS Safety Report 20739222 (Version 1)
Quarter: 2022Q2

REPORT INFORMATION
  Report Type: Spontaneous
  Country: US (occurrence: US)
  Receive Date: 20220422
  Receipt Date: 20220422
  Transmission Date: 20220721
  Serious: Yes (Other)
  Sender: FDA-Public Use
  Company Number: US-JNJFOC-20220421836

PATIENT
  Sex: Female

DRUGS (2)
  1. RYBREVANT [Suspect]
     Active Substance: AMIVANTAMAB-VMJW
     Indication: EGFR gene mutation
     Route: 065
  2. LAZERTINIB [Suspect]
     Active Substance: LAZERTINIB
     Indication: EGFR gene mutation
     Route: 065

REACTIONS (2)
  - Nervous system disorder [Unknown]
  - Neoplasm [Recovered/Resolved]

NARRATIVE: CASE EVENT DATE: 20220411
